FAERS Safety Report 8451998-6 (Version None)
Quarter: 2012Q2

REPORT INFORMATION
  Report Type: 
  Country: None (occurrence: None)
  Receive Date: 20120620
  Receipt Date: 20120330
  Transmission Date: 20120825
  Serious: No
  Sender: FDA-Public Use
  Company Number: US-VERTEX PHARMACEUTICALS INC.-AE-2012-004491

PATIENT
  Sex: Male
  Weight: 89.438 kg

DRUGS (5)
  1. RIBAVIRIN [Concomitant]
     Indication: HEPATITIS C
     Route: 048
     Dates: start: 20120327
  2. INCIVEK [Suspect]
     Indication: HEPATITIS C
     Route: 048
     Dates: start: 20120327
  3. PEGASYS [Concomitant]
     Indication: HEPATITIS C
     Route: 058
     Dates: start: 20120327
  4. MILK THISTLE [Concomitant]
     Route: 048
  5. MULTIPLE VITAMIN [Concomitant]

REACTIONS (5)
  - DIZZINESS [None]
  - ANAEMIA [None]
  - HEADACHE [None]
  - PRURITUS [None]
  - RASH [None]
